FAERS Safety Report 14232751 (Version 1)
Quarter: 2017Q4

REPORT INFORMATION
  Report Type: Spontaneous
  Country: US (occurrence: None)
  Receive Date: 20171128
  Receipt Date: 20171128
  Transmission Date: 20180321
  Serious: Yes (Death, Hospitalization)
  Sender: FDA-Public Use
  Company Number: None

PATIENT
  Age: 76 Year
  Sex: Male
  Weight: 101.83 kg

DRUGS (1)
  1. AMIODARONE [Suspect]
     Active Substance: AMIODARONE
     Indication: ATRIAL FIBRILLATION
     Route: 050
     Dates: start: 20170329, end: 20170517

REACTIONS (3)
  - Respiratory failure [None]
  - Pulmonary alveolar haemorrhage [None]
  - Organising pneumonia [None]

NARRATIVE: CASE EVENT DATE: 20170517
